FAERS Safety Report 25669454 (Version 4)
Quarter: 2025Q4

REPORT INFORMATION
  Report Type: Spontaneous
  Country: EU (occurrence: EU)
  Receive Date: 20250812
  Receipt Date: 20251028
  Transmission Date: 20260118
  Serious: Yes (Death, Other)
  Sender: AMGEN
  Company Number: EU-ROCHE-10000352133

PATIENT
  Age: 63 Year
  Sex: Male

DRUGS (2)
  1. BEVACIZUMAB [Suspect]
     Active Substance: BEVACIZUMAB
     Indication: Hepatic cancer
     Dosage: MG IN 100 ML SODIUM CHLORIDE 0.9 PERCENTINTRAVENOUSLY (IV) FOR 1 HOUR
     Route: 040
     Dates: start: 20250428, end: 20250428
  2. ATEZOLIZUMAB [Suspect]
     Active Substance: ATEZOLIZUMAB
     Indication: Hepatic cancer
     Dosage: MG IN 250 ML SODIUM CHLORIDE 0.9 PERCENTINTRAVENOUSLY (IV) FOR 1 HOUR
     Route: 040
     Dates: start: 20250428, end: 20250428

REACTIONS (5)
  - Encephalitis [Fatal]
  - Acute pulmonary oedema [Fatal]
  - Portal vein thrombosis [Unknown]
  - Disease progression [Unknown]
  - Off label use [Unknown]
